FAERS Safety Report 9391719 (Version 1)
Quarter: 2013Q3

REPORT INFORMATION
  Report Type: Spontaneous
  Country: US (occurrence: US)
  Receive Date: 20130709
  Receipt Date: 20130709
  Transmission Date: 20140515
  Serious: Yes (Life-Threatening, Hospitalization)
  Sender: FDA-Public Use
  Company Number: PHHY2013CA044784

PATIENT
  Age: 72 Year
  Sex: Male

DRUGS (2)
  1. CLARITHROMYCIN [Suspect]
     Indication: BRONCHITIS
     Dosage: 1000 MG DAILY
  2. GLIPIZIDE [Interacting]
     Indication: TYPE 2 DIABETES MELLITUS
     Dosage: 15 MG DAILY

REACTIONS (2)
  - Stupor [Recovered/Resolved]
  - Drug interaction [Unknown]
